FAERS Safety Report 11088294 (Version 2)
Quarter: 2015Q2

REPORT INFORMATION
  Report Type: Report from Study
  Country: US (occurrence: US)
  Receive Date: 20150504
  Receipt Date: 20150507
  Transmission Date: 20150821
  Serious: Yes (Hospitalization, Other)
  Sender: FDA-Public Use
  Company Number: US-SA-2015SA045411

PATIENT
  Age: 33 Year
  Sex: Female

DRUGS (3)
  1. REBIF [Concomitant]
     Active Substance: INTERFERON BETA-1A
     Indication: MULTIPLE SCLEROSIS
     Dates: start: 20150301
  2. AUBAGIO [Suspect]
     Active Substance: TERIFLUNOMIDE
     Indication: MULTIPLE SCLEROSIS
     Route: 065
     Dates: start: 20131004, end: 20140401
  3. REBIF [Concomitant]
     Active Substance: INTERFERON BETA-1A
     Indication: MULTIPLE SCLEROSIS
     Dates: start: 20140501, end: 20140701

REACTIONS (22)
  - Muscle spasms [Unknown]
  - Blindness [Unknown]
  - Vision blurred [Unknown]
  - Speech disorder [Unknown]
  - Muscle tightness [Unknown]
  - Clumsiness [Unknown]
  - Dyskinesia [Unknown]
  - Loss of consciousness [Unknown]
  - Drug ineffective [Unknown]
  - Burning sensation [Unknown]
  - Multiple sclerosis [Unknown]
  - Impaired work ability [Unknown]
  - Impaired driving ability [Unknown]
  - Pain [Unknown]
  - Hypoaesthesia [Unknown]
  - Multiple sclerosis relapse [Unknown]
  - Unevaluable event [Unknown]
  - Visual impairment [Unknown]
  - Grip strength decreased [Unknown]
  - Hypoaesthesia [Not Recovered/Not Resolved]
  - Diplopia [Unknown]
  - Eye oedema [Unknown]
